FAERS Safety Report 14158355 (Version 1)
Quarter: 2017Q4

REPORT INFORMATION
  Report Type: Report from Study
  Country: IL (occurrence: IL)
  Receive Date: 20171103
  Receipt Date: 20171103
  Transmission Date: 20180321
  Serious: Yes (Hospitalization)
  Sender: FDA-Public Use
  Company Number: IL-PFIZER INC-2017466472

PATIENT

DRUGS (4)
  1. SIROLIMUS. [Suspect]
     Active Substance: SIROLIMUS
     Indication: LEIOMYOSARCOMA
  2. PAZOPANIB [Concomitant]
     Active Substance: PAZOPANIB
     Indication: LEIOMYOSARCOMA
  3. PAZOPANIB [Concomitant]
     Active Substance: PAZOPANIB
     Indication: SOFT TISSUE SARCOMA
     Dosage: 400 MG, CYCLIC
     Route: 048
  4. SIROLIMUS. [Suspect]
     Active Substance: SIROLIMUS
     Indication: SOFT TISSUE SARCOMA
     Dosage: 3 MG, CYCLIC
     Route: 048

REACTIONS (1)
  - Intestinal perforation [Recovered/Resolved]
